FAERS Safety Report 18125347 (Version 1)
Quarter: 2020Q3

REPORT INFORMATION
  Report Type: Spontaneous
  Country: AU (occurrence: AU)
  Receive Date: 20200807
  Receipt Date: 20200807
  Transmission Date: 20201103
  Serious: Yes (Other)
  Sender: FDA-Public Use
  Company Number: AU-009507513-2008AUS002074

PATIENT
  Age: 38 Year
  Sex: Female

DRUGS (5)
  1. ORGALUTRAN [Suspect]
     Active Substance: GANIRELIX ACETATE
     Dosage: UNK
  2. FOLLITROPIN [Suspect]
     Active Substance: FOLLITROPIN
     Dosage: 12 MICROGRAM, QD
     Route: 058
  3. OROXINE [Concomitant]
     Active Substance: LEVOTHYROXINE SODIUM
     Dosage: UNK
  4. ELONVA [Suspect]
     Active Substance: CORIFOLLITROPIN ALFA
     Indication: CONTROLLED OVARIAN STIMULATION
     Dosage: UNK
  5. FOLLITROPIN [Suspect]
     Active Substance: FOLLITROPIN
     Dosage: 18 MICROGRAM

REACTIONS (5)
  - Hallucination [Recovered/Resolved]
  - Anger [Recovered/Resolved]
  - Prescribed overdose [Unknown]
  - Paranoia [Recovered/Resolved]
  - Product use issue [Unknown]
